FAERS Safety Report 5355762-6 (Version None)
Quarter: 2007Q2

REPORT INFORMATION
  Report Type: 
  Country: None (occurrence: None)
  Receive Date: 20070530
  Receipt Date: 20061009
  Transmission Date: 20071010
  Serious: Yes (Hospitalization)
  Sender: FDA-Public Use
  Company Number: US200610001785

PATIENT
  Sex: Male
  Weight: 143.3 kg

DRUGS (2)
  1. ZYPREXA [Suspect]
     Dosage: 15 MG
     Dates: start: 20030914, end: 20040428
  2. ABILIFY [Concomitant]

REACTIONS (2)
  - DIABETES MELLITUS [None]
  - HYPERTENSION [None]
